FAERS Safety Report 7830822-6 (Version None)
Quarter: 2011Q4

REPORT INFORMATION
  Report Type: 
  Country: None (occurrence: None)
  Receive Date: 20111021
  Receipt Date: 20111013
  Transmission Date: 20120403
  Serious: Yes (Hospitalization)
  Sender: FDA-Public Use
  Company Number: FR-GLAXOSMITHKLINE-B0755047A

PATIENT
  Sex: Male
  Weight: 110 kg

DRUGS (12)
  1. ALEPSAL [Concomitant]
     Dosage: 100MG AT NIGHT
     Route: 048
  2. LEVOTHYROXINE SODIUM [Concomitant]
     Dosage: 25MCG IN THE MORNING
     Route: 048
  3. TRANXENE [Concomitant]
     Dosage: 5MG TWICE PER DAY
     Route: 048
  4. ALDACTONE [Concomitant]
     Indication: OEDEMA PERIPHERAL
     Dosage: 50MG IN THE MORNING
     Dates: start: 20110520
  5. ALFUZOSIN HCL [Concomitant]
     Dosage: 10MG AT NIGHT
     Route: 048
  6. CLOBETASOL PROPIONATE [Suspect]
     Indication: PEMPHIGOID
     Route: 061
     Dates: start: 20100101, end: 20110301
  7. LASIX [Concomitant]
     Dosage: 40MG TWICE PER DAY
     Route: 048
  8. NEXIUM [Concomitant]
     Dosage: 40MG AT NIGHT
     Route: 048
  9. AMIODARONE HCL [Concomitant]
     Dosage: 200MG SEE DOSAGE TEXT
     Route: 048
  10. LEVOTHYROXINE SODIUM [Concomitant]
     Dosage: 75MCG IN THE MORNING
     Route: 048
  11. PREVISCAN [Concomitant]
     Dosage: 2TAB AT NIGHT
     Route: 048
  12. SIMVASTATIN [Concomitant]
     Dosage: 20MG PER DAY

REACTIONS (14)
  - CUSHING'S SYNDROME [None]
  - SKIN ATROPHY [None]
  - WEIGHT INCREASED [None]
  - ARTHRALGIA [None]
  - CARDIAC FAILURE [None]
  - MOVEMENT DISORDER [None]
  - ERYTHROSIS [None]
  - FLUID RETENTION [None]
  - OEDEMA [None]
  - NECK DEFORMITY [None]
  - CENTRAL OBESITY [None]
  - SKIN STRIAE [None]
  - OBESITY [None]
  - CUSHINGOID [None]
